FAERS Safety Report 7865280-9 (Version None)
Quarter: 2011Q4

REPORT INFORMATION
  Report Type: 
  Country: None (occurrence: None)
  Receive Date: 20111028
  Receipt Date: 20101115
  Transmission Date: 20120403
  Serious: No
  Sender: FDA-Public Use
  Company Number: US-GLAXOSMITHKLINE-A0892561A

PATIENT
  Age: 48 Year
  Sex: Female

DRUGS (14)
  1. ADVAIR DISKUS 100/50 [Suspect]
     Indication: CHRONIC OBSTRUCTIVE PULMONARY DISEASE
     Dosage: 1PUFF PER DAY
     Route: 055
     Dates: start: 20010101
  2. SINGULAIR [Concomitant]
  3. ZOVIRAX [Concomitant]
  4. LYRICA [Concomitant]
  5. VOLTAREN [Concomitant]
  6. TOPAMAX [Concomitant]
  7. VERAMYST [Concomitant]
  8. ZOLOFT [Concomitant]
  9. LORAZEPAM [Concomitant]
  10. VALIUM [Concomitant]
  11. XOPENEX [Concomitant]
  12. SYMBICORT [Concomitant]
  13. DUONEB [Concomitant]
  14. PREDNISONE [Concomitant]

REACTIONS (1)
  - TOOTH EROSION [None]
